FAERS Safety Report 17910481 (Version 2)
Quarter: 2022Q3

REPORT INFORMATION
  Report Type: Spontaneous
  Country: US (occurrence: US)
  Receive Date: 20200618
  Receipt Date: 20220712
  Transmission Date: 20221027
  Serious: Yes (Death, Other)
  Sender: FDA-Public Use
  Company Number: US-SAARTEMIS-SAC202006160207

PATIENT
  Age: 60 Year
  Sex: Female

DRUGS (1)
  1. ZANTAC [Suspect]
     Active Substance: RANITIDINE HYDROCHLORIDE
     Indication: Dyspepsia
     Dosage: 150 MG, QD
     Route: 065
     Dates: start: 200301, end: 201701

REACTIONS (3)
  - Renal cancer stage IV [Unknown]
  - Brain neoplasm malignant [Unknown]
  - Colorectal cancer stage IV [Fatal]

NARRATIVE: CASE EVENT DATE: 20161101
